FAERS Safety Report 15255512 (Version 1)
Quarter: 2018Q3

REPORT INFORMATION
  Report Type: Spontaneous
  Country: US (occurrence: US)
  Receive Date: 20180717
  Receipt Date: 20180717
  Transmission Date: 20181010
  Serious: Yes (Death)
  Sender: FDA-Public Use
  Company Number: None

PATIENT
  Sex: Female

DRUGS (12)
  1. SUMATRIPTAN. [Concomitant]
     Active Substance: SUMATRIPTAN
  2. TOPRAMATE [Concomitant]
  3. LOSARTAN. [Concomitant]
     Active Substance: LOSARTAN
  4. MELOXICAM. [Concomitant]
     Active Substance: MELOXICAM
  5. CARB LEVO [Concomitant]
  6. SUMATRIPTAN. [Concomitant]
     Active Substance: SUMATRIPTAN
  7. TETRABENAZINE. [Suspect]
     Active Substance: TETRABENAZINE
     Indication: ARTHRITIS
     Route: 048
     Dates: start: 20170502
  8. ALPRAZOLAM. [Concomitant]
     Active Substance: ALPRAZOLAM
  9. ORENCIA [Concomitant]
     Active Substance: ABATACEPT
  10. BUTORPHANOL [Concomitant]
     Active Substance: BUTORPHANOL
  11. ZOLPIDEM [Concomitant]
     Active Substance: ZOLPIDEM\ZOLPIDEM TARTRATE
  12. PROPRANOLOL [Concomitant]
     Active Substance: PROPRANOLOL HYDROCHLORIDE

REACTIONS (1)
  - Death [None]
